FAERS Safety Report 25964225 (Version 1)
Quarter: 2025Q4

REPORT INFORMATION
  Report Type: Spontaneous
  Country: US (occurrence: None)
  Receive Date: 20251027
  Receipt Date: 20251027
  Transmission Date: 20260117
  Serious: No
  Sender: FDA-CTU
  Company Number: None

PATIENT
  Sex: Male

DRUGS (1)
  1. TOLVAPTAN [Suspect]
     Active Substance: TOLVAPTAN
     Indication: Congenital cystic kidney disease
     Dosage: OTHER FREQUENCY : 15 MG BY MOUTH EVE;?
     Route: 048
     Dates: start: 20250930

REACTIONS (4)
  - Blood pressure increased [None]
  - Dry mouth [None]
  - Thirst [None]
  - Pollakiuria [None]
